FAERS Safety Report 7506662-4 (Version None)
Quarter: 2011Q2

REPORT INFORMATION
  Report Type: 
  Country: None (occurrence: None)
  Receive Date: 20110526
  Receipt Date: 20110520
  Transmission Date: 20111010
  Serious: Yes (Other)
  Sender: FDA-Public Use
  Company Number: US-PURDUE-USA-2011-0068702

PATIENT
  Sex: Female

DRUGS (1)
  1. OXYCONTIN [Suspect]
     Indication: BACK PAIN
     Dosage: 80 MG, BID

REACTIONS (5)
  - SKULL FRACTURE [None]
  - FALL [None]
  - HEADACHE [None]
  - PAIN [None]
  - BRAIN INJURY [None]
